FAERS Safety Report 5059365-2 (Version None)
Quarter: 2006Q3

REPORT INFORMATION
  Report Type: 
  Country: None (occurrence: None)
  Receive Date: 20060718
  Receipt Date: 20060707
  Transmission Date: 20061208
  Serious: Yes (Life-Threatening, Hospitalization, Disabling)
  Sender: FDA-Public Use
  Company Number: 02H-153-0205484-00

PATIENT
  Sex: Male
  Weight: 3.775 kg

DRUGS (1)
  1. ATRACURIUM BESYLATE [Suspect]
     Dosage: 10 MG, ONCE, INTRAMUSCULAR
     Route: 030
     Dates: start: 20021129, end: 20021129

REACTIONS (15)
  - BRADYCARDIA NEONATAL [None]
  - BRONCHIOLITIS [None]
  - BRONCHOPNEUMONIA [None]
  - COMA NEONATAL [None]
  - CYANOSIS NEONATAL [None]
  - DEVELOPMENTAL COORDINATION DISORDER [None]
  - DEVELOPMENTAL DELAY [None]
  - DYSPNOEA [None]
  - HYPERGLYCAEMIA [None]
  - INFANTILE APNOEIC ATTACK [None]
  - MEDICATION ERROR [None]
  - NEONATAL DISORDER [None]
  - NEONATAL RESPIRATORY ARREST [None]
  - NUCLEAR MAGNETIC RESONANCE IMAGING BRAIN ABNORMAL [None]
  - PSYCHOMOTOR SKILLS IMPAIRED [None]
